FAERS Safety Report 17550626 (Version 1)
Quarter: 2020Q1

REPORT INFORMATION
  Report Type: Spontaneous
  Country: PL (occurrence: PL)
  Receive Date: 20200317
  Receipt Date: 20200317
  Transmission Date: 20200409
  Serious: Yes (Other)
  Sender: FDA-Public Use
  Company Number: PL-BAUSCH-BL-2020-007708

PATIENT
  Age: 60 Year
  Sex: Male

DRUGS (6)
  1. CLINDAMYCIN. [Suspect]
     Active Substance: CLINDAMYCIN
     Indication: DIABETIC FOOT INFECTION
     Dosage: UNK
     Route: 065
  2. INSULIN [Concomitant]
     Active Substance: INSULIN NOS
     Indication: DIABETES MELLITUS
     Dosage: 30 UNITS IN MORNING AND 15 UNITS IN EVENING
     Route: 065
  3. ENOXAPARINUM NATRICUM [Concomitant]
     Indication: EMBOLISM
     Dosage: UNK
     Route: 065
  4. LEVOFLOXACIN. [Suspect]
     Active Substance: LEVOFLOXACIN
     Indication: DIABETIC FOOT INFECTION
     Dosage: UNK
     Route: 065
  5. RAMIPRILUM [Concomitant]
     Indication: HYPERTENSION
     Dosage: UNK
     Route: 065
  6. HUMULIN N [Concomitant]
     Active Substance: INSULIN HUMAN
     Indication: DIABETES MELLITUS
     Dosage: UNK
     Route: 065

REACTIONS (3)
  - Escherichia infection [Unknown]
  - Streptococcal sepsis [Unknown]
  - Enterococcal infection [Unknown]
